FAERS Safety Report 4820276-6 (Version None)
Quarter: 2005Q4

REPORT INFORMATION
  Report Type: 
  Country: None (occurrence: None)
  Receive Date: 20051104
  Receipt Date: 20050919
  Transmission Date: 20060501
  Serious: Yes (Other)
  Sender: FDA-Public Use
  Company Number: CA-AMGEN-US151151

PATIENT
  Sex: Female

DRUGS (2)
  1. ENBREL [Suspect]
     Indication: RHEUMATOID ARTHRITIS
     Route: 058
     Dates: start: 20050808, end: 20050829
  2. ISONIAZID [Concomitant]
     Dates: start: 20050801, end: 20050801

REACTIONS (2)
  - ALANINE AMINOTRANSFERASE INCREASED [None]
  - TUBERCULIN TEST POSITIVE [None]
